FAERS Safety Report 5750019-3 (Version None)
Quarter: 2008Q2

REPORT INFORMATION
  Report Type: 
  Country: None (occurrence: None)
  Receive Date: 20080527
  Receipt Date: 20080515
  Transmission Date: 20081010
  Serious: Yes (Death)
  Sender: FDA-Public Use
  Company Number: TH-BOEHRINGER INGELHEIM GMBH, GERMANY-2007-DE-04512GD

PATIENT

DRUGS (1)
  1. TRIOMUNE [Suspect]
     Indication: HIV INFECTION
     Dosage: SEPARATE NEVIRAPINE 200 MG QD LEAD-IN DOSE DURING THE FIRST 2 WEEKS, PRIOR TO ESCALATION TO 200 MG B

REACTIONS (7)
  - DEATH [None]
  - DRUG RESISTANCE [None]
  - HYPERLACTACIDAEMIA [None]
  - HYPERTENSION [None]
  - LACTIC ACIDOSIS [None]
  - NEUROPATHY PERIPHERAL [None]
  - RASH [None]
